FAERS Safety Report 22020586 (Version 1)
Quarter: 2023Q1

REPORT INFORMATION
  Report Type: Spontaneous
  Country: US (occurrence: None)
  Receive Date: 20230217
  Receipt Date: 20230217
  Transmission Date: 20230418
  Serious: Yes (Death)
  Sender: FDA-Public Use
  Company Number: None

PATIENT
  Age: 79 Year
  Sex: Female

DRUGS (13)
  1. TABLOID [Suspect]
     Active Substance: THIOGUANINE
     Indication: Acute myeloid leukaemia
     Route: 048
  2. AMMOMINUM LACTATE [Concomitant]
  3. CALCIUM [Concomitant]
     Active Substance: CALCIUM
  4. DORYX [Concomitant]
  5. DOXYCYCLINE HYCLATE [Concomitant]
  6. ELIQUIS [Concomitant]
  7. FLUTICASONE PROPLONATE [Concomitant]
  8. IMODIUM A-D [Concomitant]
  9. LOPERAMIDE HCI [Concomitant]
  10. PROLIA [Concomitant]
  11. VIBRAMYCIN [Concomitant]
  12. VITAMIN D-3 [Concomitant]
  13. VITAMINS/MINERALS [Concomitant]

REACTIONS (1)
  - Death [None]
